FAERS Safety Report 16238819 (Version 1)
Quarter: 2019Q2

REPORT INFORMATION
  Report Type: Spontaneous
  Country: US (occurrence: US)
  Receive Date: 20190425
  Receipt Date: 20190425
  Transmission Date: 20190711
  Serious: Yes (Hospitalization)
  Sender: FDA-Public Use
  Company Number: US-VERTEX PHARMACEUTICALS-2019-003501

PATIENT
  Sex: Male

DRUGS (1)
  1. ORKAMBI [Suspect]
     Active Substance: IVACAFTOR\LUMACAFTOR
     Indication: CYSTIC FIBROSIS
     Dosage: 2 DOSAGE FORM (200/125 MG TABLET EACH), BID
     Route: 048
     Dates: start: 201808

REACTIONS (2)
  - Infective pulmonary exacerbation of cystic fibrosis [Unknown]
  - Bipolar disorder [Unknown]

NARRATIVE: CASE EVENT DATE: 2019
